FAERS Safety Report 5812852-9 (Version None)
Quarter: 2008Q3

REPORT INFORMATION
  Report Type: 
  Country: None (occurrence: None)
  Receive Date: 20080717
  Receipt Date: 20080711
  Transmission Date: 20090109
  Serious: Yes (Death, Hospitalization)
  Sender: FDA-Public Use
  Company Number: US-BAYER-200823319NA

PATIENT
  Age: 50 Year
  Sex: Male
  Weight: 81 kg

DRUGS (34)
  1. SORAFENIB/PLACEBO [Suspect]
     Indication: NON-SMALL CELL LUNG CANCER
     Dosage: TOTAL DAILY DOSE: 800 MG  UNIT DOSE: 200 MG
     Route: 048
     Dates: start: 20080402, end: 20080421
  2. ERLOTINIB [Suspect]
     Indication: NON-SMALL CELL LUNG CANCER
     Dates: start: 20080402, end: 20080421
  3. OXYCODONE HCL [Concomitant]
  4. CEPHALEXIN [Concomitant]
     Dosage: TOTAL DAILY DOSE: 1500 MG
  5. COUMADIN [Concomitant]
     Dosage: AS USED: 5 MG
     Route: 048
     Dates: start: 20080409, end: 20080519
  6. COUMADIN [Concomitant]
     Dosage: TOTAL DAILY DOSE: 2 MG
  7. PRONCHLOPEN [Concomitant]
  8. OXYCONTIN [Concomitant]
     Route: 048
     Dates: start: 20080409
  9. OXYCONTIN [Concomitant]
     Dosage: TOTAL DAILY DOSE: 40 MG
  10. FOLIC ACID [Concomitant]
     Dosage: TOTAL DAILY DOSE: 400 ?G
     Route: 048
     Dates: start: 20080505
  11. DEXAMETHASONE [Concomitant]
     Dosage: TOTAL DAILY DOSE: 4 MG
  12. UROXATRAL [Concomitant]
     Dosage: TOTAL DAILY DOSE: 20 MG
     Dates: start: 20080430
  13. PROCRIT [Concomitant]
     Route: 058
     Dates: start: 20080514, end: 20080514
  14. PROCRIT [Concomitant]
     Route: 058
  15. TYLENOL [Concomitant]
     Dates: start: 20080514, end: 20080514
  16. ATIVAN [Concomitant]
     Dates: start: 20080514, end: 20080514
  17. MORPHINE [Concomitant]
     Dates: start: 20080512, end: 20080512
  18. PHENERGAN HCL [Concomitant]
     Dates: start: 20080513, end: 20080513
  19. RT ATROVENT [Concomitant]
     Dates: start: 20080512, end: 20080512
  20. RT XOPENEX [Concomitant]
     Dates: start: 20080512, end: 20080512
  21. BENADRYL [Concomitant]
     Dates: start: 20080514, end: 20080514
  22. DECADRON [Concomitant]
     Route: 048
     Dates: start: 20070530
  23. DECADRON [Concomitant]
     Dates: start: 20080512, end: 20080512
  24. LOVENOX [Concomitant]
     Route: 058
  25. LOVENOX [Concomitant]
     Dates: start: 20080513, end: 20080513
  26. COMPAZINE [Concomitant]
     Dates: start: 20080421
  27. ALBUTEROL [Concomitant]
     Dates: start: 20070201
  28. NYQUIL [Concomitant]
     Route: 048
     Dates: start: 20071201
  29. FLUCONAZOLE [Concomitant]
     Route: 048
     Dates: start: 20080418
  30. OXYCODONE AND ACETAMINOPHEN [Concomitant]
     Route: 048
     Dates: start: 20080421
  31. BACTRIM [Concomitant]
     Dosage: TOTAL DAILY DOSE: 1600 MG
     Route: 048
     Dates: start: 20080430
  32. CEPHALEXIN [Concomitant]
     Dosage: TOTAL DAILY DOSE: 1000 MG
     Route: 048
     Dates: start: 20080502
  33. ARIXTRA [Concomitant]
     Route: 058
     Dates: start: 20080409, end: 20080414
  34. PERCOCET [Concomitant]
     Route: 048
     Dates: start: 20070201

REACTIONS (6)
  - ACUTE RESPIRATORY FAILURE [None]
  - DEEP VEIN THROMBOSIS [None]
  - DYSPNOEA [None]
  - HYPOXIA [None]
  - PNEUMONIA [None]
  - PULMONARY EMBOLISM [None]
